FAERS Safety Report 5479541-4 (Version None)
Quarter: 2007Q4

REPORT INFORMATION
  Report Type: 
  Country: None (occurrence: None)
  Receive Date: 20071008
  Receipt Date: 20070927
  Transmission Date: 20080405
  Serious: Yes (Hospitalization)
  Sender: FDA-Public Use
  Company Number: US-ROCHE-521993

PATIENT
  Age: 72 Year
  Sex: Male
  Weight: 75.3 kg

DRUGS (4)
  1. PEGASYS [Suspect]
     Route: 058
     Dates: start: 20070910, end: 20070927
  2. RIBAVIRIN [Suspect]
     Dosage: TAKEN AS THREE 200 MG TABLETS IN THE MORNING AND TWO 200 MG TABLETS IN THE EVENING.
     Route: 048
     Dates: start: 20070910, end: 20070927
  3. INSULIN [Concomitant]
     Dosage: REPORTED AS LOW DOSE.
  4. LASIX [Concomitant]
     Indication: DRUG USE FOR UNKNOWN INDICATION

REACTIONS (4)
  - BLOOD CREATININE INCREASED [None]
  - BLOOD SODIUM DECREASED [None]
  - BLOOD UREA INCREASED [None]
  - DYSPNOEA [None]
